FAERS Safety Report 7755287 (Version 3)
Quarter: 2014Q1

REPORT INFORMATION
  Report Type: Spontaneous
  Country: FR (occurrence: FR)
  Receive Date: 20110111
  Receipt Date: 20140304
  Transmission Date: 20141002
  Serious: Yes (Death, Life-Threatening, Hospitalization)
  Sender: FDA-Public Use
  Company Number: FR-JNJFOC-20110100188

PATIENT
  Age: 36 Year
  Sex: Male

DRUGS (27)
  1. HALDOL [Suspect]
     Indication: NAUSEA
     Route: 048
     Dates: start: 20091112, end: 20091113
  2. TOPALGIC [Suspect]
     Indication: PAIN
     Route: 048
     Dates: start: 20091113, end: 20091113
  3. CONTRAMAL LP [Suspect]
     Indication: PAIN
     Route: 048
     Dates: start: 20091113, end: 20091113
  4. ETOPOSIDE [Suspect]
     Indication: EXTRAGONADAL PRIMARY GERM CELL TUMOUR MIXED STAGE I
     Route: 042
     Dates: start: 20101109, end: 20101111
  5. CIPROFLOXACINE [Suspect]
     Indication: FEBRILE BONE MARROW APLASIA
     Route: 048
     Dates: start: 20091117, end: 20091121
  6. TRIFLUCAN [Suspect]
     Indication: FEBRILE BONE MARROW APLASIA
     Route: 048
     Dates: start: 20091117, end: 20091121
  7. AUGMENTIN [Suspect]
     Indication: FEBRILE BONE MARROW APLASIA
     Route: 048
     Dates: start: 20091117, end: 20091121
  8. LAROXYL [Suspect]
     Indication: PRODUCT USED FOR UNKNOWN INDICATION
     Route: 048
     Dates: start: 20091109, end: 20091111
  9. LAROXYL [Suspect]
     Indication: PRODUCT USED FOR UNKNOWN INDICATION
     Route: 048
     Dates: start: 20091110, end: 20091111
  10. EMEND [Suspect]
     Indication: PRODUCT USED FOR UNKNOWN INDICATION
     Route: 048
     Dates: start: 20091110, end: 20091113
  11. EMEND [Suspect]
     Indication: PRODUCT USED FOR UNKNOWN INDICATION
     Route: 048
     Dates: start: 20091109, end: 20091111
  12. POLARAMIN [Suspect]
     Indication: PREMEDICATION
     Route: 042
     Dates: start: 20091113, end: 20091113
  13. CARBOPLATIN [Suspect]
     Indication: EXTRAGONADAL PRIMARY GERM CELL TUMOUR MIXED STAGE I
     Route: 042
     Dates: start: 20091109, end: 20091111
  14. NEURONTIN [Suspect]
     Indication: PRODUCT USED FOR UNKNOWN INDICATION
     Route: 048
     Dates: start: 20091109, end: 20091113
  15. ORAMORPH [Concomitant]
     Route: 065
     Dates: start: 20091110, end: 20091113
  16. BIONOLYTE [Concomitant]
     Route: 065
     Dates: start: 20091109, end: 20091113
  17. OXYCONTIN [Concomitant]
     Route: 065
     Dates: start: 20091109, end: 20091113
  18. OXYNORM [Concomitant]
     Route: 065
     Dates: start: 20091109, end: 20091110
  19. LEXOMIL [Concomitant]
     Route: 065
     Dates: start: 20091109, end: 20091113
  20. PRIMPERAN [Concomitant]
     Route: 065
     Dates: start: 20091110, end: 20091113
  21. EFFERALGAN [Concomitant]
     Route: 065
     Dates: start: 20091110, end: 20091113
  22. LIDOCAINE [Concomitant]
     Route: 003
     Dates: start: 20091110, end: 20091113
  23. ZOPHREN [Concomitant]
     Route: 065
     Dates: start: 20091110, end: 20091113
  24. NEUPOGEN [Concomitant]
     Route: 065
     Dates: start: 20091111, end: 20091113
  25. NEUPOGEN [Concomitant]
     Route: 065
     Dates: start: 20091111, end: 20091111
  26. HYDROCORTISONE [Concomitant]
     Route: 065
     Dates: start: 20091113, end: 20091113
  27. FLAGYL [Concomitant]
     Indication: FEBRILE BONE MARROW APLASIA
     Route: 065
     Dates: start: 20091117, end: 20091121

REACTIONS (4)
  - Febrile bone marrow aplasia [Fatal]
  - Enteritis [Fatal]
  - Intestinal obstruction [Unknown]
  - Off label use [Recovered/Resolved]
